FAERS Safety Report 8961873 (Version 1)
Quarter: 2012Q4

REPORT INFORMATION
  Report Type: Report from Study
  Country: US (occurrence: US)
  Receive Date: 20121213
  Receipt Date: 20121213
  Transmission Date: 20130627
  Serious: Yes (Hospitalization, Other)
  Sender: FDA-Public Use
  Company Number: US-ABBOTT-12P-163-1016748-00

PATIENT
  Sex: Male
  Weight: 112.59 kg

DRUGS (13)
  1. NIASPAN (COATED) [Suspect]
     Indication: PRODUCT USED FOR UNKNOWN INDICATION
     Route: 048
     Dates: start: 2002
  2. LIPITOR [Concomitant]
     Indication: BLOOD CHOLESTEROL INCREASED
  3. LOVAZA [Concomitant]
     Indication: PRODUCT USED FOR UNKNOWN INDICATION
  4. COREG [Concomitant]
     Indication: PRODUCT USED FOR UNKNOWN INDICATION
  5. PLAVIX [Concomitant]
     Indication: PRODUCT USED FOR UNKNOWN INDICATION
  6. FUROSEMIDE [Concomitant]
     Indication: PRODUCT USED FOR UNKNOWN INDICATION
  7. HUMALOG [Concomitant]
     Indication: DIABETES MELLITUS
  8. JANUVIA [Concomitant]
     Indication: DIABETES MELLITUS
  9. GLIPIZIDE [Concomitant]
     Indication: DIABETES MELLITUS
  10. POTASSIUM [Concomitant]
     Indication: PRODUCT USED FOR UNKNOWN INDICATION
  11. VITAMIN D NOS [Concomitant]
     Indication: PRODUCT USED FOR UNKNOWN INDICATION
  12. OMEPRAZOLE [Concomitant]
     Indication: GASTROOESOPHAGEAL REFLUX DISEASE
  13. DOXYCYCLINE [Concomitant]
     Indication: PROPHYLAXIS

REACTIONS (5)
  - Cerebrovascular accident [Recovering/Resolving]
  - Renal impairment [Recovered/Resolved]
  - Cellulitis [Recovered/Resolved]
  - Flushing [Recovering/Resolving]
  - Wound infection [Recovered/Resolved]
